FAERS Safety Report 6289114-1 (Version None)
Quarter: 2009Q3

REPORT INFORMATION
  Report Type: 
  Country: None (occurrence: None)
  Receive Date: 20090728
  Receipt Date: 20090714
  Transmission Date: 20100115
  Serious: Yes (Other)
  Sender: FDA-Public Use
  Company Number: TRP_06154_2009

PATIENT
  Sex: Female
  Weight: 63.5036 kg

DRUGS (4)
  1. INFERGEN [Suspect]
     Indication: HEPATITIS C
     Dosage: 15 MICROGRAM, QD SUBCUTANEOUS
     Route: 058
     Dates: start: 20090205, end: 20090301
  2. INFERGEN [Suspect]
     Indication: HEPATITIS C
     Dosage: 15 MICROGRAM, QD SUBCUTANEOUS
     Route: 058
     Dates: start: 20090327, end: 20090409
  3. NORVASC [Concomitant]
  4. FOLIC ACID [Concomitant]

REACTIONS (13)
  - ACTIVITIES OF DAILY LIVING IMPAIRED [None]
  - ANGIOEDEMA [None]
  - CHEST PAIN [None]
  - CHILLS [None]
  - DEPRESSION [None]
  - DYSPNOEA [None]
  - FOOD ALLERGY [None]
  - HEADACHE [None]
  - HEPATIC CIRRHOSIS [None]
  - HYPOTHYROIDISM [None]
  - MYALGIA [None]
  - POOR QUALITY SLEEP [None]
  - VISUAL IMPAIRMENT [None]
